FAERS Safety Report 8161307 (Version 4)
Quarter: 2013Q1

REPORT INFORMATION
  Report Type: Report from Study
  Country: UA (occurrence: UA)
  Receive Date: 20110929
  Receipt Date: 20130129
  Transmission Date: 20140127
  Serious: Yes (Death, Life-Threatening)
  Sender: FDA-Public Use
  Company Number: UA-ELI_LILLY_AND_COMPANY-UA201109006498

PATIENT
  Age: 58 Year
  Sex: Male
  Weight: 75 kg

DRUGS (7)
  1. PEMETREXED [Suspect]
     Indication: NON-SMALL CELL LUNG CANCER
     Dosage: 975 MG, ONCE EVERY 21 DAYS
     Route: 042
     Dates: start: 20110908, end: 20110908
  2. FOLIC ACID [Concomitant]
     Indication: PREMEDICATION
     Dosage: UNK
     Route: 048
     Dates: start: 20110903, end: 20110921
  3. CYANOCOBALAMIN [Concomitant]
     Dosage: UNK
     Route: 030
     Dates: start: 20110907, end: 20110907
  4. DICLOFENAC [Concomitant]
     Indication: CHEST PAIN
     Dosage: UNK
     Route: 048
     Dates: start: 20110910, end: 20110917
  5. DEXAMETHASONE [Concomitant]
     Dosage: UNK
     Route: 030
     Dates: start: 20110907, end: 20110909
  6. ONDANSETRON [Concomitant]
     Indication: VOMITING
     Dosage: UNK
     Route: 042
     Dates: start: 20110908, end: 20110908
  7. ONDANSETRON [Concomitant]
     Dosage: UNK
     Route: 048
     Dates: start: 20110912, end: 20110912

REACTIONS (6)
  - Multi-organ failure [Fatal]
  - Hyponatraemia [Recovered/Resolved]
  - Alanine aminotransferase increased [Recovered/Resolved]
  - Aspartate aminotransferase increased [Recovered/Resolved]
  - Hypochloraemia [Recovered/Resolved]
  - Fatigue [Recovered/Resolved]
